FAERS Safety Report 10952842 (Version 3)
Quarter: 2015Q2

REPORT INFORMATION
  Report Type: Report from Study
  Country: CA (occurrence: CA)
  Receive Date: 20150325
  Receipt Date: 20150409
  Transmission Date: 20150821
  Serious: Yes (Hospitalization, Other)
  Sender: FDA-Public Use
  Company Number: CA-ROCHE-1361909

PATIENT
  Age: 87 Year
  Sex: Female

DRUGS (4)
  1. FOLIC ACID. [Concomitant]
     Active Substance: FOLIC ACID
  2. RITUXAN [Suspect]
     Active Substance: RITUXIMAB
     Indication: WARM TYPE HAEMOLYTIC ANAEMIA
     Dosage: WEEKLY X 4?DATE OF LAST DOSE PRIOR TO SAE 25/MAR/2014
     Route: 042
     Dates: start: 20110112
  3. PREMARIN [Concomitant]
     Active Substance: ESTROGENS, CONJUGATED
  4. RITUXAN [Suspect]
     Active Substance: RITUXIMAB
     Indication: AUTOIMMUNE HAEMOLYTIC ANAEMIA
     Dosage: WEEKLY X 4?DATE OF LAST DOSE PRIOR TO SAE 25/MAR/2014
     Route: 042
     Dates: start: 20140304

REACTIONS (9)
  - Cold type haemolytic anaemia [Unknown]
  - Blood test abnormal [Recovered/Resolved]
  - Autoimmune haemolytic anaemia [Unknown]
  - Influenza [Unknown]
  - Lymphoma [Unknown]
  - Off label use [Unknown]
  - Hypotension [Unknown]
  - Epistaxis [Unknown]
  - Nasopharyngitis [Unknown]

NARRATIVE: CASE EVENT DATE: 20150304
